FAERS Safety Report 9956515 (Version 1)
Quarter: 2014Q1

REPORT INFORMATION
  Report Type: Report from Study
  Country: US (occurrence: US)
  Receive Date: 20140304
  Receipt Date: 20140304
  Transmission Date: 20141002
  Serious: No
  Sender: FDA-Public Use
  Company Number: US-ABBVIE-13P-163-1094527-00

PATIENT
  Sex: Female

DRUGS (7)
  1. HUMIRA [Suspect]
     Indication: CROHN^S DISEASE
     Dates: start: 201212
  2. GARLIC OVER THE COUNTER [Concomitant]
     Indication: BLOOD CHOLESTEROL
     Dosage: DAILY
  3. SIMVASTATIN [Concomitant]
     Indication: BLOOD CHOLESTEROL
  4. BENAZEPRIL [Concomitant]
     Indication: BLOOD PRESSURE
  5. OMEPRAZOLE [Concomitant]
     Indication: DYSPEPSIA
  6. VENLAFAXINE [Concomitant]
     Indication: DEPRESSION
  7. COLESTIPOL [Concomitant]
     Indication: DIARRHOEA
     Dosage: AS NEEDED

REACTIONS (2)
  - Injection site pain [Not Recovered/Not Resolved]
  - Device malfunction [Unknown]
